FAERS Safety Report 26218846 (Version 1)
Quarter: 2025Q4

REPORT INFORMATION
  Report Type: Spontaneous
  Country: US (occurrence: US)
  Receive Date: 20251231
  Receipt Date: 20251231
  Transmission Date: 20260118
  Serious: No
  Sender: PFIZER
  Company Number: US-PFIZER INC-PV202500150744

PATIENT
  Age: 60 Year
  Sex: Male

DRUGS (3)
  1. RIFABUTIN [Suspect]
     Active Substance: RIFABUTIN
     Dosage: UNK
     Dates: start: 2021, end: 2023
  2. AZITHROMYCIN [Suspect]
     Active Substance: AZITHROMYCIN
     Dosage: UNK
     Dates: start: 2021, end: 2023
  3. ETHAMBUTOL [Suspect]
     Active Substance: ETHAMBUTOL HYDROCHLORIDE
     Dosage: UNK
     Dates: start: 2021, end: 2023

REACTIONS (1)
  - Disease recurrence [Unknown]

NARRATIVE: CASE EVENT DATE: 20250101
